FAERS Safety Report 24120498 (Version 1)
Quarter: 2024Q3

REPORT INFORMATION
  Report Type: Spontaneous
  Country: CO (occurrence: CO)
  Receive Date: 20240722
  Receipt Date: 20240722
  Transmission Date: 20241016
  Serious: Yes (Death, Hospitalization, Other)
  Sender: BAYER
  Company Number: CO-BAYER-2024A099879

PATIENT
  Age: 72 Year
  Sex: Male
  Weight: 90 kg

DRUGS (2)
  1. ULTRAVIST [Suspect]
     Active Substance: IOPROMIDE
     Indication: Angiogram
     Dosage: 50 ML, ONCE
     Route: 042
     Dates: start: 20240704, end: 20240704
  2. ULTRAVIST [Suspect]
     Active Substance: IOPROMIDE
     Indication: Intracranial aneurysm

REACTIONS (5)
  - Anaphylactic shock [Fatal]
  - Erythema [Fatal]
  - Tongue oedema [Fatal]
  - Blood pressure increased [Fatal]
  - Pulse absent [Fatal]

NARRATIVE: CASE EVENT DATE: 20240704
